FAERS Safety Report 4327412-9 (Version None)
Quarter: 2004Q1

REPORT INFORMATION
  Report Type: 
  Country: None (occurrence: None)
  Receive Date: 20040330
  Receipt Date: 20040324
  Transmission Date: 20041129
  Serious: Yes (Death, Other)
  Sender: FDA-Public Use
  Company Number: CO-MERCK-0403COL00039

PATIENT
  Age: 49 Year
  Sex: Male

DRUGS (3)
  1. SULPERAZONE [Concomitant]
     Route: 051
  2. INVANZ [Suspect]
     Route: 051
     Dates: start: 20040227, end: 20040308
  3. VANCOMYCIN [Concomitant]
     Route: 051

REACTIONS (3)
  - CHOLANGITIS [None]
  - MULTI-ORGAN FAILURE [None]
  - SEPSIS [None]
